FAERS Safety Report 12076168 (Version 1)
Quarter: 2016Q1

REPORT INFORMATION
  Report Type: Spontaneous
  Country: US (occurrence: US)
  Receive Date: 20160215
  Receipt Date: 20160215
  Transmission Date: 20160526
  Serious: Yes (Hospitalization)
  Sender: FDA-Public Use
  Company Number: US-BEH-2016058568

PATIENT
  Age: 71 Year
  Sex: Female
  Weight: 48 kg

DRUGS (41)
  1. CALCIUM D [Concomitant]
     Active Substance: CALCIUM\VITAMIN D
  2. HEPARIN [Concomitant]
     Active Substance: HEPARIN SODIUM
  3. OXYGEN. [Concomitant]
     Active Substance: OXYGEN
  4. PATADAY [Concomitant]
     Active Substance: OLOPATADINE HYDROCHLORIDE
  5. BRIMONIDINE TARTRATE. [Concomitant]
     Active Substance: BRIMONIDINE TARTRATE
  6. TRAMADOL. [Concomitant]
     Active Substance: TRAMADOL
  7. ZEMAIRA [Suspect]
     Active Substance: .ALPHA.1-PROTEINASE INHIBITOR HUMAN
     Indication: ALPHA-1 ANTI-TRYPSIN DEFICIENCY
     Route: 042
  8. DIPHENHYDRAMINE. [Concomitant]
     Active Substance: DIPHENHYDRAMINE
  9. SODIUM CHLORIDE. [Concomitant]
     Active Substance: SODIUM CHLORIDE
  10. NITROFURANTOIN. [Concomitant]
     Active Substance: NITROFURANTOIN
  11. CIPROFLOXACIN. [Concomitant]
     Active Substance: CIPROFLOXACIN
  12. EX-STR [Concomitant]
  13. OXYGEN. [Concomitant]
     Active Substance: OXYGEN
  14. EPIPEN [Concomitant]
     Active Substance: EPINEPHRINE
  15. SERTRALINE [Concomitant]
     Active Substance: SERTRALINE HYDROCHLORIDE
  16. SOTALOL. [Concomitant]
     Active Substance: SOTALOL
  17. PREDNISONE. [Concomitant]
     Active Substance: PREDNISONE
  18. GUAIFENESIN. [Concomitant]
     Active Substance: GUAIFENESIN
  19. STERILE WATER FOR INJECTION [Concomitant]
     Active Substance: WATER
  20. VITAMIN B12 [Concomitant]
     Active Substance: CYANOCOBALAMIN
  21. ZOFRAN [Concomitant]
     Active Substance: ONDANSETRON HYDROCHLORIDE
  22. POTASSIUM [Concomitant]
     Active Substance: POTASSIUM
  23. LUMIGAN [Concomitant]
     Active Substance: BIMATOPROST
  24. ASPIRIN. [Concomitant]
     Active Substance: ASPIRIN
  25. CHLORZOXAZONE. [Concomitant]
     Active Substance: CHLORZOXAZONE
  26. DOXYCYCLINE. [Concomitant]
     Active Substance: DOXYCYCLINE
  27. TOBI [Concomitant]
     Active Substance: TOBRAMYCIN
  28. NEXIUM [Concomitant]
     Active Substance: ESOMEPRAZOLE MAGNESIUM
  29. TYLENOL PM [Concomitant]
     Active Substance: ACETAMINOPHEN\DIPHENHYDRAMINE
  30. ALBUTEROL. [Concomitant]
     Active Substance: ALBUTEROL
  31. VITAMIN C [Concomitant]
     Active Substance: ASCORBIC ACID
  32. VIBRAMYCIN [Concomitant]
     Active Substance: DOXYCYCLINE
  33. ZEMAIRA [Suspect]
     Active Substance: .ALPHA.1-PROTEINASE INHIBITOR HUMAN
     Indication: ESSENTIAL HYPERTENSION
     Route: 042
  34. ZEMAIRA [Suspect]
     Active Substance: .ALPHA.1-PROTEINASE INHIBITOR HUMAN
     Indication: EMPHYSEMA
     Route: 042
  35. MAGNESIUM [Concomitant]
     Active Substance: MAGNESIUM
  36. VOLTAREN [Concomitant]
     Active Substance: DICLOFENAC SODIUM
  37. GABAPENTIN. [Concomitant]
     Active Substance: GABAPENTIN
  38. ADVAIR HFA [Concomitant]
     Active Substance: FLUTICASONE PROPIONATE\SALMETEROL XINAFOATE
  39. LASIX [Concomitant]
     Active Substance: FUROSEMIDE
  40. XANAX [Concomitant]
     Active Substance: ALPRAZOLAM
  41. IPRATROPIUM [Concomitant]
     Active Substance: IPRATROPIUM

REACTIONS (2)
  - Hypertension [Unknown]
  - Dyspnoea [Unknown]

NARRATIVE: CASE EVENT DATE: 20160131
